FAERS Safety Report 6195267-6 (Version None)
Quarter: 2009Q2

REPORT INFORMATION
  Report Type: 
  Country: None (occurrence: None)
  Receive Date: 20090519
  Receipt Date: 20090511
  Transmission Date: 20091009
  Serious: Yes (Other)
  Sender: FDA-Public Use
  Company Number: US-AVENTIS-200914168US

PATIENT
  Age: 63 Year
  Sex: Male

DRUGS (3)
  1. LANTUS [Suspect]
     Route: 058
     Dates: start: 20060101
  2. LANTUS [Suspect]
     Route: 058
     Dates: start: 20060101
  3. LANTUS [Suspect]
     Route: 058
     Dates: start: 20060101

REACTIONS (5)
  - CARDIAC OPERATION [None]
  - INJECTION SITE PAIN [None]
  - SKIN ULCER [None]
  - STENT PLACEMENT [None]
  - VASCULAR OPERATION [None]
